FAERS Safety Report 7521150-7 (Version None)
Quarter: 2011Q2

REPORT INFORMATION
  Report Type: 
  Country: None (occurrence: None)
  Receive Date: 20110603
  Receipt Date: 20101208
  Transmission Date: 20111010
  Serious: Yes (Other)
  Sender: FDA-Public Use
  Company Number: US-BAYER-2010-003147

PATIENT
  Age: 51 Year
  Sex: Female

DRUGS (3)
  1. AVELOX [Suspect]
     Indication: ANTIBIOTIC THERAPY
     Dosage: 400 MG, UNK
     Route: 048
     Dates: start: 20090101, end: 20090101
  2. TRAMADOL HYDROCHLORIDE [Concomitant]
  3. PROPRANOLOL [Suspect]

REACTIONS (4)
  - HAEMATOCHEZIA [None]
  - ASTHENIA [None]
  - SWELLING [None]
  - PAIN IN EXTREMITY [None]
